FAERS Safety Report 24139985 (Version 1)
Quarter: 2024Q3

REPORT INFORMATION
  Report Type: Spontaneous
  Country: ES (occurrence: ES)
  Receive Date: 20240726
  Receipt Date: 20240726
  Transmission Date: 20241016
  Serious: Yes (Death, Hospitalization)
  Sender: TEVA
  Company Number: None

PATIENT
  Age: 76 Year
  Sex: Female

DRUGS (2)
  1. BISOPROLOL [Interacting]
     Active Substance: BISOPROLOL\BISOPROLOL FUMARATE
     Indication: Atrial fibrillation
     Dosage: BISOPROLOL (2328A)
     Route: 048
     Dates: start: 20120616, end: 20230525
  2. AMIODARONE HYDROCHLORIDE [Interacting]
     Active Substance: AMIODARONE HYDROCHLORIDE
     Indication: Atrial fibrillation
     Dosage: TRANGOREX 30 TABLETS
     Route: 048
     Dates: start: 20120615, end: 20230527

REACTIONS (1)
  - Atrioventricular block complete [Fatal]

NARRATIVE: CASE EVENT DATE: 20230529
